FAERS Safety Report 6134479-4 (Version None)
Quarter: 2009Q1

REPORT INFORMATION
  Report Type: 
  Country: None (occurrence: None)
  Receive Date: 20090327
  Receipt Date: 20090323
  Transmission Date: 20090719
  Serious: Yes (Disabling, Other)
  Sender: FDA-Public Use
  Company Number: US-PFIZER INC-2009187102

PATIENT
  Sex: Female
  Weight: 81.646 kg

DRUGS (2)
  1. CELEBREX [Suspect]
     Indication: ARTHRITIS
  2. ASPIRIN [Concomitant]

REACTIONS (6)
  - ARTHROPATHY [None]
  - BODY HEIGHT DECREASED [None]
  - FIBROMYALGIA [None]
  - JOINT SWELLING [None]
  - OSTEOPOROSIS [None]
  - WEIGHT DECREASED [None]
